FAERS Safety Report 26154637 (Version 2)
Quarter: 2025Q4

REPORT INFORMATION
  Report Type: Spontaneous
  Country: EU (occurrence: EU)
  Receive Date: 20251215
  Receipt Date: 20251217
  Transmission Date: 20260117
  Serious: Yes (Other)
  Sender: NOVARTIS
  Company Number: EU-002147023-NVSC2025DE190267

PATIENT
  Sex: Female

DRUGS (1)
  1. GILENYA [Suspect]
     Active Substance: FINGOLIMOD HYDROCHLORIDE
     Indication: Multiple sclerosis
     Dosage: UNK
     Route: 065

REACTIONS (14)
  - Syncope [Unknown]
  - Product physical issue [Unknown]
  - Accidental exposure to product [Unknown]
  - Migraine with aura [Unknown]
  - Nausea [Not Recovered/Not Resolved]
  - Photophobia [Unknown]
  - Visual impairment [Unknown]
  - Vision blurred [Unknown]
  - Dyspnoea [Unknown]
  - Lymphocyte count increased [Unknown]
  - Monocyte count increased [Unknown]
  - Fungal skin infection [Recovered/Resolved]
  - Malaise [Not Recovered/Not Resolved]
  - Skin discolouration [Unknown]

NARRATIVE: CASE EVENT DATE: 20240101
